FAERS Safety Report 12553299 (Version 2)
Quarter: 2016Q3

REPORT INFORMATION
  Report Type: Spontaneous
  Country: IT (occurrence: IT)
  Receive Date: 20160713
  Receipt Date: 20160729
  Transmission Date: 20161109
  Serious: Yes (Hospitalization)
  Sender: FDA-Public Use
  Company Number: IT-FRESENIUS KABI-FK201604216

PATIENT
  Age: 57 Year
  Sex: Male

DRUGS (7)
  1. CISPLATIN. [Suspect]
     Active Substance: CISPLATIN
     Indication: RICHTER^S SYNDROME
     Route: 042
     Dates: start: 20160419, end: 20160420
  2. CORLENTOR [Concomitant]
     Active Substance: IVABRADINE HYDROCHLORIDE
  3. DILATREND [Concomitant]
     Active Substance: CARVEDILOL
  4. CYTARABINE (MANUFACTURER UNKNOWN) [Suspect]
     Active Substance: CYTARABINE
     Indication: RICHTER^S SYNDROME
     Route: 042
     Dates: start: 20160420, end: 20160420
  5. DELTACORTENE [Concomitant]
     Active Substance: PREDNISONE
  6. NISTATIN [Concomitant]
     Active Substance: NYSTATIN
  7. CARDIOASPIRIN [Concomitant]
     Active Substance: ASPIRIN

REACTIONS (3)
  - Metabolic acidosis [Unknown]
  - Acute kidney injury [Unknown]
  - Malaise [Unknown]

NARRATIVE: CASE EVENT DATE: 20160430
